FAERS Safety Report 9631456 (Version 1)
Quarter: 2013Q4

REPORT INFORMATION
  Report Type: Spontaneous
  Country: US (occurrence: None)
  Receive Date: 20131017
  Receipt Date: 20131017
  Transmission Date: 20140711
  Serious: Yes (Life-Threatening)
  Sender: FDA-Public Use
  Company Number: None

PATIENT
  Age: 46 Year
  Sex: Female
  Weight: 63.8 kg

DRUGS (2)
  1. CLOFARABINE [Suspect]
     Indication: ACUTE MYELOID LEUKAEMIA
     Route: 042
     Dates: start: 20130822, end: 20130826
  2. CYTARABINE [Concomitant]

REACTIONS (5)
  - Hypotension [None]
  - Tachycardia [None]
  - Hypoxia [None]
  - Vasodilatation [None]
  - Capillary leak syndrome [None]
